FAERS Safety Report 24186984 (Version 1)
Quarter: 2024Q3

REPORT INFORMATION
  Report Type: Spontaneous
  Country: US (occurrence: US)
  Receive Date: 20240808
  Receipt Date: 20240808
  Transmission Date: 20241017
  Serious: No
  Sender: GLENMARK
  Company Number: US-GLENMARK PHARMACEUTICALS-2024GMK089963

PATIENT

DRUGS (2)
  1. ETHINYL ESTRADIOL\NORGESTIMATE [Suspect]
     Active Substance: ETHINYL ESTRADIOL\NORGESTIMATE
     Indication: Contraception
     Dosage: UNK, AM, 9 AM EACH DAY
     Route: 065
  2. ELLA [ULIPRISTAL ACETATE] [Concomitant]
     Indication: Product used for unknown indication
     Dosage: UNK, MORNING AFTER PILL
     Route: 065

REACTIONS (1)
  - Product dose omission issue [Unknown]
